FAERS Safety Report 7301747-X (Version None)
Quarter: 2011Q1

REPORT INFORMATION
  Report Type: 
  Country: None (occurrence: None)
  Receive Date: 20110218
  Receipt Date: 20110214
  Transmission Date: 20110831
  Serious: Yes (Hospitalization, Congenital Anomaly)
  Sender: FDA-Public Use
  Company Number: A0875969A

PATIENT
  Sex: Male
  Weight: 3.5 kg

DRUGS (1)
  1. PAXIL [Suspect]
     Indication: PRODUCT USED FOR UNKNOWN INDICATION
     Route: 064

REACTIONS (12)
  - DRUG EXPOSURE DURING PREGNANCY [None]
  - HYPERHIDROSIS [None]
  - PULMONARY ARTERY STENOSIS CONGENITAL [None]
  - RESPIRATORY FAILURE [None]
  - CARDIAC MURMUR [None]
  - VENTRICULAR HYPERTROPHY [None]
  - TRICUSPID VALVE INCOMPETENCE [None]
  - CYANOSIS [None]
  - ATRIAL SEPTAL DEFECT [None]
  - PATENT DUCTUS ARTERIOSUS [None]
  - CAESAREAN SECTION [None]
  - MATERNAL DRUGS AFFECTING FOETUS [None]
